FAERS Safety Report 14438515 (Version 1)
Quarter: 2018Q1

REPORT INFORMATION
  Report Type: Spontaneous
  Country: ES (occurrence: ES)
  Receive Date: 20180125
  Receipt Date: 20180125
  Transmission Date: 20180509
  Serious: Yes (Other)
  Sender: FDA-Public Use
  Company Number: ES-JNJFOC-20180127841

PATIENT
  Age: 70 Year
  Sex: Male

DRUGS (3)
  1. PARACETAMOL [Concomitant]
     Active Substance: ACETAMINOPHEN
     Indication: PAIN
     Route: 048
  2. IMBRUVICA [Suspect]
     Active Substance: IBRUTINIB
     Indication: CHRONIC LYMPHOCYTIC LEUKAEMIA
     Route: 048
     Dates: start: 20170525
  3. PREGABALIN. [Concomitant]
     Active Substance: PREGABALIN
     Indication: POST HERPETIC NEURALGIA
     Route: 048

REACTIONS (2)
  - Conjunctivitis [Unknown]
  - Blepharitis [Unknown]

NARRATIVE: CASE EVENT DATE: 20170628
